FAERS Safety Report 11482922 (Version 1)
Quarter: 2015Q3

REPORT INFORMATION
  Report Type: Spontaneous
  Country: US (occurrence: None)
  Receive Date: 20150908
  Receipt Date: 20150908
  Transmission Date: 20151125
  Serious: Yes (Other)
  Sender: FDA-Public Use
  Company Number: None

PATIENT
  Age: 49 Year
  Sex: Female
  Weight: 86.18 kg

DRUGS (2)
  1. LAMICTAL [Concomitant]
     Active Substance: LAMOTRIGINE
  2. DIVALPROEX 250 MG SUNPHARMA [Suspect]
     Active Substance: DIVALPROEX SODIUM
     Indication: BIPOLAR DISORDER
     Dosage: 1 PILL
     Route: 048
     Dates: start: 20150903, end: 20150903

REACTIONS (4)
  - Product formulation issue [None]
  - Pruritus [None]
  - Oesophageal pain [None]
  - Throat irritation [None]

NARRATIVE: CASE EVENT DATE: 20150903
